FAERS Safety Report 10620427 (Version 3)
Quarter: 2015Q1

REPORT INFORMATION
  Report Type: Spontaneous
  Country: TW (occurrence: TW)
  Receive Date: 20141202
  Receipt Date: 20150115
  Transmission Date: 20150720
  Serious: Yes (Death, Hospitalization, Other)
  Sender: FDA-Public Use
  Company Number: TW-ELI_LILLY_AND_COMPANY-TW201411004200

PATIENT
  Age: 63 Year
  Sex: Male

DRUGS (10)
  1. ALIMTA [Suspect]
     Active Substance: PEMETREXED DISODIUM
     Indication: LUNG NEOPLASM MALIGNANT
     Dosage: 845 MG, UNK
     Route: 042
     Dates: start: 20140730
  2. ALIMTA [Suspect]
     Active Substance: PEMETREXED DISODIUM
     Dosage: 860 MG, UNK
     Route: 042
     Dates: start: 20140830
  3. CISPLATIN. [Concomitant]
     Active Substance: CISPLATIN
     Indication: LUNG NEOPLASM MALIGNANT
     Dosage: 125 MG, UNK
     Route: 042
     Dates: start: 20140730
  4. HYDROXOCOBALAMIN [Concomitant]
     Active Substance: HYDROXOCOBALAMIN
     Dosage: 1 MG, UNKNOWN
     Route: 030
     Dates: start: 20140730
  5. ALIMTA [Suspect]
     Active Substance: PEMETREXED DISODIUM
     Dosage: 850 MG, UNK
     Route: 042
     Dates: start: 20141018
  6. KEMOCARB [Concomitant]
     Indication: LUNG NEOPLASM MALIGNANT
     Dosage: 380 MG, UNK
     Route: 042
     Dates: start: 20141018
  7. FOLIC ACID. [Concomitant]
     Active Substance: FOLIC ACID
     Indication: PRODUCT USED FOR UNKNOWN INDICATION
     Dosage: 5 MG, UNKNOWN
     Route: 065
  8. HYDROXOCOBALAMIN [Concomitant]
     Active Substance: HYDROXOCOBALAMIN
     Dosage: 1 MG, UNK
     Route: 030
     Dates: start: 20140811
  9. HYDROXOCOBALAMIN [Concomitant]
     Active Substance: HYDROXOCOBALAMIN
     Dosage: 1 MG, UNK
     Route: 030
     Dates: start: 20141105
  10. CISPLATIN. [Concomitant]
     Active Substance: CISPLATIN
     Dosage: 125 MG, UNK
     Route: 042
     Dates: start: 20140830

REACTIONS (4)
  - Respiratory failure [Fatal]
  - Bone marrow failure [Unknown]
  - Off label use [Unknown]
  - Sepsis [Fatal]

NARRATIVE: CASE EVENT DATE: 20141105
